FAERS Safety Report 6919063-4 (Version None)
Quarter: 2010Q3

REPORT INFORMATION
  Report Type: 
  Country: None (occurrence: None)
  Receive Date: 20100811
  Receipt Date: 20100729
  Transmission Date: 20110219
  Serious: Yes (Hospitalization, Other)
  Sender: FDA-Public Use
  Company Number: PHHY2010FR51281

PATIENT
  Age: 85 Year
  Sex: Male
  Weight: 70 kg

DRUGS (21)
  1. EXELON [Suspect]
     Indication: DEMENTIA ALZHEIMER'S TYPE
     Dosage: 1.5 MG TWICE PER DAY AND 3 MG TWICE PER DAY
     Route: 048
     Dates: start: 20100512
  2. EXELON [Suspect]
     Dosage: 1.5 MG, BID
     Route: 048
     Dates: start: 20100515, end: 20100516
  3. RASILEZ [Suspect]
     Dosage: 150 MG, QD
  4. NEOSYNEPHRINE 5% (NVO) [Suspect]
     Dosage: UNK, ONCE PER DAY
     Route: 047
  5. TEMERIT [Concomitant]
     Dosage: 5 MG, QD
  6. OLMESARTAN MEDOXOMIL [Concomitant]
     Dosage: 20 MG, BID
     Dates: end: 20100501
  7. AMLOR [Concomitant]
     Dosage: 5 MG, QD
  8. DISCOTRINE [Concomitant]
     Dosage: 10 MG, QD
  9. KARDEGIC [Concomitant]
     Dosage: 160 MG, QD
  10. STAGID [Concomitant]
     Dosage: 700 MG, BID
  11. JANUVIA [Concomitant]
     Dosage: 100 MG, QD
  12. PRAVASTATIN [Concomitant]
     Dosage: 20 MG, QD
  13. NEXIUM [Concomitant]
  14. MEPRONIZINE [Concomitant]
     Dosage: ONCE A DAY
  15. SPIRIVA [Concomitant]
     Dosage: UNK
  16. NOROXIN [Concomitant]
     Dosage: 400 MG, BID
  17. SINGULAIR [Concomitant]
     Dosage: 10 MG, QD
  18. LOVENOX [Concomitant]
     Dosage: 0.4 ML, BID
     Route: 058
  19. TOBRADEX [Concomitant]
     Dosage: UNK
  20. ATROPINE [Concomitant]
  21. ASPIRIN [Concomitant]

REACTIONS (22)
  - ABNORMAL BEHAVIOUR [None]
  - ATRIAL FLUTTER [None]
  - BRADYPNOEA [None]
  - CEREBRAL ARTERY OCCLUSION [None]
  - CEREBRAL ATROPHY [None]
  - CEREBRAL ISCHAEMIA [None]
  - CEREBROVASCULAR ACCIDENT [None]
  - CONFUSIONAL STATE [None]
  - DYSPHAGIA [None]
  - EPISTAXIS [None]
  - FALL [None]
  - HEMIPLEGIA [None]
  - HYPERTENSION [None]
  - HYPERTENSIVE CRISIS [None]
  - LACUNAR INFARCTION [None]
  - LOSS OF CONSCIOUSNESS [None]
  - MALAISE [None]
  - MOTOR DYSFUNCTION [None]
  - MUTISM [None]
  - OVERDOSE [None]
  - RENAL FAILURE [None]
  - VASCULAR DEMENTIA [None]
